FAERS Safety Report 4678618-0 (Version None)
Quarter: 2005Q2

REPORT INFORMATION
  Report Type: 
  Country: None (occurrence: None)
  Receive Date: 20050601
  Receipt Date: 20020107
  Transmission Date: 20051028
  Serious: Yes (Life-Threatening, Hospitalization, Other)
  Sender: FDA-Public Use
  Company Number: PHFR2002GB00509

PATIENT
  Age: 57 Year
  Sex: Male

DRUGS (8)
  1. TACROLIMUS [Suspect]
     Dosage: 4 MG, BID
     Route: 048
  2. CEFRADINE [Concomitant]
     Indication: URINARY TRACT INFECTION
     Dosage: 500MG/DAY
     Route: 048
     Dates: start: 20040401
  3. RAMIPRIL [Concomitant]
     Indication: RENAL FAILURE
     Dosage: 10MG/DAY
     Route: 048
  4. PAROXETINE HCL [Suspect]
     Indication: DEPRESSION
     Dosage: 50MG/DAY
     Route: 048
  5. CLOZARIL [Suspect]
     Dosage: 500MG/DAY
     Route: 048
  6. CLOZARIL [Suspect]
     Dosage: 300MG/DAY
     Route: 048
     Dates: start: 19961101
  7. CLOZARIL [Suspect]
     Route: 048
  8. MYCOPHENOLATE SODIUM [Suspect]
     Indication: BONE MARROW CONDITIONING REGIMEN
     Dosage: 250 MG, BID
     Route: 048
     Dates: start: 20040401, end: 20050427

REACTIONS (13)
  - AGRANULOCYTOSIS [None]
  - BLOOD ALBUMIN DECREASED [None]
  - BLOOD CHLORIDE INCREASED [None]
  - BLOOD CREATININE INCREASED [None]
  - BLOOD UREA INCREASED [None]
  - HAEMODIALYSIS [None]
  - HAEMOGLOBIN DECREASED [None]
  - LIVER FUNCTION TEST ABNORMAL [None]
  - NEPHROTIC SYNDROME [None]
  - RENAL FAILURE [None]
  - RENAL TRANSPLANT [None]
  - URINARY RETENTION [None]
  - URINARY TRACT DISORDER [None]
